FAERS Safety Report 6404376-5 (Version None)
Quarter: 2009Q4

REPORT INFORMATION
  Report Type: 
  Country: None (occurrence: None)
  Receive Date: 20091016
  Receipt Date: 20091012
  Transmission Date: 20100525
  Serious: Yes (Other)
  Sender: FDA-Public Use
  Company Number: US-BAYER-200936045NA

PATIENT
  Sex: Male

DRUGS (4)
  1. AVELOX [Suspect]
     Indication: DRUG USE FOR UNKNOWN INDICATION
     Route: 013
  2. TYGACIL [Suspect]
     Indication: ABDOMINAL ABSCESS
     Route: 013
     Dates: start: 20090831
  3. TYGACIL [Suspect]
     Route: 042
     Dates: start: 20090823
  4. TYGACIL [Suspect]
     Dates: start: 20090901

REACTIONS (2)
  - CEREBRAL INFARCTION [None]
  - CONVULSION [None]
